FAERS Safety Report 25932894 (Version 1)
Quarter: 2025Q4

REPORT INFORMATION
  Report Type: Report from Study
  Country: AE (occurrence: AE)
  Receive Date: 20251017
  Receipt Date: 20251017
  Transmission Date: 20260118
  Serious: Yes (Other)
  Sender: ROCHE
  Company Number: AE-ROCHE-10000411024

PATIENT
  Age: 16 Year
  Sex: Male

DRUGS (1)
  1. RITUXIMAB [Suspect]
     Active Substance: RITUXIMAB
     Indication: Product used for unknown indication
     Route: 065

REACTIONS (6)
  - Haemorrhage intracranial [Unknown]
  - Muscle haemorrhage [Unknown]
  - Autism spectrum disorder [Unknown]
  - Skin haemorrhage [Unknown]
  - Haemarthrosis [Unknown]
  - Haemophilia [Unknown]
